FAERS Safety Report 16266582 (Version 1)
Quarter: 2019Q2

REPORT INFORMATION
  Report Type: Report from Study
  Country: US (occurrence: US)
  Receive Date: 20190502
  Receipt Date: 20190502
  Transmission Date: 20190711
  Serious: No
  Sender: FDA-Public Use
  Company Number: PHEH2019US018115

PATIENT
  Sex: Female

DRUGS (1)
  1. ENTRESTO [Suspect]
     Active Substance: SACUBITRIL\VALSARTAN
     Indication: CARDIAC FAILURE
     Dosage: 1 DF (SACUBITRIL 24 MG, VALSARTAN 26 MG), QD
     Route: 048
     Dates: start: 201902

REACTIONS (4)
  - Blood pressure decreased [Unknown]
  - Underdose [Unknown]
  - Nocturia [Unknown]
  - Inappropriate schedule of product administration [Unknown]
